FAERS Safety Report 19438076 (Version 2)
Quarter: 2021Q3

REPORT INFORMATION
  Report Type: Spontaneous
  Country: IT (occurrence: IT)
  Receive Date: 20210619
  Receipt Date: 20210706
  Transmission Date: 20211014
  Serious: Yes (Death)
  Sender: FDA-Public Use
  Company Number: IT-ROCHE-2851300

PATIENT
  Age: 69 Year
  Sex: Male

DRUGS (7)
  1. OXALIPLATIN. [Suspect]
     Active Substance: OXALIPLATIN
     Indication: COLON CANCER STAGE III
     Dosage: CONCENTRATE FOR SOLUTION FOR INFUSION
     Route: 042
     Dates: start: 20210521, end: 20210521
  2. ATORVASTATIN [Concomitant]
     Active Substance: ATORVASTATIN
  3. VALSARTAN. [Concomitant]
     Active Substance: VALSARTAN
  4. CAPECITABINE. [Suspect]
     Active Substance: CAPECITABINE
     Indication: COLON CANCER STAGE III
     Route: 048
     Dates: start: 20210521, end: 20210530
  5. BISOPROLOL [Concomitant]
     Active Substance: BISOPROLOL
  6. EZETIMIBE. [Concomitant]
     Active Substance: EZETIMIBE
  7. PANTOPRAZOLE [Concomitant]
     Active Substance: PANTOPRAZOLE

REACTIONS (3)
  - Neutropenia [Fatal]
  - Stomatitis [Fatal]
  - Thrombocytopenia [Fatal]

NARRATIVE: CASE EVENT DATE: 20210529
